FAERS Safety Report 5275623-0 (Version None)
Quarter: 2007Q1

REPORT INFORMATION
  Report Type: 
  Country: None (occurrence: None)
  Receive Date: 20070326
  Receipt Date: 20070316
  Transmission Date: 20070707
  Serious: Yes (Hospitalization)
  Sender: FDA-Public Use
  Company Number: GB-ABBOTT-07P-167-0357419-00

PATIENT
  Sex: Female
  Weight: 79.6 kg

DRUGS (1)
  1. HUMIRA [Suspect]
     Indication: RHEUMATOID ARTHRITIS
     Dates: start: 20041201, end: 20050224

REACTIONS (3)
  - COMPARTMENT SYNDROME [None]
  - FASCIITIS [None]
  - SEPSIS [None]
